FAERS Safety Report 16757257 (Version 5)
Quarter: 2019Q4

REPORT INFORMATION
  Report Type: Spontaneous
  Country: MX (occurrence: MX)
  Receive Date: 20190829
  Receipt Date: 20191223
  Transmission Date: 20200122
  Serious: Yes (Other)
  Sender: FDA-Public Use
  Company Number: MX-BEH-2019106125

PATIENT
  Age: 80 Year
  Sex: Female
  Weight: 55 kg

DRUGS (1)
  1. HIGLOBIN [Suspect]
     Active Substance: HUMAN IMMUNOGLOBULIN G
     Indication: CHRONIC INFLAMMATORY DEMYELINATING POLYRADICULONEUROPATHY
     Dosage: 0.4 GRAM PER KILOGRAM, QD
     Route: 065
     Dates: start: 201905, end: 2019

REACTIONS (2)
  - Leukopenia [Recovered/Resolved]
  - Respiratory disorder [Fatal]

NARRATIVE: CASE EVENT DATE: 201905
